FAERS Safety Report 14826524 (Version 1)
Quarter: 2018Q2

REPORT INFORMATION
  Report Type: Spontaneous
  Country: JP (occurrence: JP)
  Receive Date: 20180430
  Receipt Date: 20180430
  Transmission Date: 20180711
  Serious: Yes (Other)
  Sender: FDA-Public Use
  Company Number: PHJP2018JP009685

PATIENT
  Age: 47 Year
  Sex: Male

DRUGS (5)
  1. CONTOMIN [Concomitant]
     Active Substance: CHLORPROMAZINE
     Indication: PRODUCT USED FOR UNKNOWN INDICATION
     Dosage: 100 MG, TID
     Route: 048
  2. TASMOLIN [Concomitant]
     Active Substance: BIPERIDEN
     Indication: PRODUCT USED FOR UNKNOWN INDICATION
     Dosage: 2 DF, QD
     Route: 048
  3. ABILIFY [Concomitant]
     Active Substance: ARIPIPRAZOLE
     Indication: PRODUCT USED FOR UNKNOWN INDICATION
     Dosage: 24 MG, QD
     Route: 048
  4. TEGRETOL [Suspect]
     Active Substance: CARBAMAZEPINE
     Indication: PRODUCT USED FOR UNKNOWN INDICATION
     Dosage: 100 MG, BID
     Route: 048
     Dates: start: 20180420, end: 20180424
  5. CERCINE [Concomitant]
     Active Substance: DIAZEPAM
     Indication: PRODUCT USED FOR UNKNOWN INDICATION
     Dosage: 15 MG, QD
     Route: 048

REACTIONS (2)
  - Loss of consciousness [Unknown]
  - Diarrhoea [Unknown]

NARRATIVE: CASE EVENT DATE: 20180423
